FAERS Safety Report 9097678 (Version 1)
Quarter: 2013Q1

REPORT INFORMATION
  Report Type: Spontaneous
  Country: GB (occurrence: GB)
  Receive Date: 20130212
  Receipt Date: 20130212
  Transmission Date: 20140127
  Serious: Yes (Hospitalization, Other)
  Sender: FDA-Public Use
  Company Number: PHFR2012GB005741

PATIENT
  Age: 26 Year
  Sex: Male
  Weight: 81.4 kg

DRUGS (3)
  1. CLOZARIL [Suspect]
     Indication: SCHIZOPHRENIA, PARANOID TYPE
     Dosage: 325 MG, UNK
     Route: 048
     Dates: start: 20100903, end: 20121029
  2. CLOZARIL [Suspect]
     Dosage: 8 TABLETS EACH 200 MG
     Dates: start: 20121029
  3. CLOZARIL [Suspect]
     Dosage: UNK UKN, UNK

REACTIONS (6)
  - Intentional overdose [Recovered/Resolved]
  - Suicide attempt [Unknown]
  - Blood creatine phosphokinase increased [Unknown]
  - Hallucination, auditory [Unknown]
  - Aspartate aminotransferase increased [Unknown]
  - Depressed mood [Unknown]
